FAERS Safety Report 13853971 (Version 16)
Quarter: 2018Q2

REPORT INFORMATION
  Report Type: Report from Study
  Country: ES (occurrence: ES)
  Receive Date: 20170809
  Receipt Date: 20180515
  Transmission Date: 20180711
  Serious: Yes (Hospitalization)
  Sender: FDA-Public Use
  Company Number: ES-EISAI MEDICAL RESEARCH-EC-2017-029975

PATIENT
  Age: 13 Year
  Sex: Female
  Weight: 37.7 kg

DRUGS (19)
  1. ETOPOSIDE. [Suspect]
     Active Substance: ETOPOSIDE
     Dosage: CYCLE 5
     Route: 041
     Dates: start: 20171121, end: 20171123
  2. IFOSFAMIDE. [Suspect]
     Active Substance: IFOSFAMIDE
     Indication: OSTEOSARCOMA
     Route: 041
     Dates: start: 20170725, end: 20170727
  3. IFOSFAMIDE. [Suspect]
     Active Substance: IFOSFAMIDE
     Dosage: CYCLE 4
     Route: 041
     Dates: start: 2017, end: 2017
  4. ONDANSETRON [Concomitant]
     Active Substance: ONDANSETRON
  5. LENVATINIB [Suspect]
     Active Substance: LENVATINIB
     Indication: OSTEOSARCOMA
     Route: 048
     Dates: start: 20170725, end: 20170801
  6. LENVATINIB [Suspect]
     Active Substance: LENVATINIB
     Route: 048
     Dates: start: 20170803, end: 20170803
  7. DEXCHLORPHENIRAMINE [Concomitant]
     Active Substance: DEXCHLORPHENIRAMINE
  8. LENVATINIB [Suspect]
     Active Substance: LENVATINIB
     Route: 048
     Dates: start: 20170829, end: 20171129
  9. ETOPOSIDE. [Suspect]
     Active Substance: ETOPOSIDE
     Indication: OSTEOSARCOMA
     Route: 041
     Dates: start: 20170725, end: 20170727
  10. HYDROCORTISONE. [Concomitant]
     Active Substance: HYDROCORTISONE
  11. IFOSFAMIDE. [Suspect]
     Active Substance: IFOSFAMIDE
     Dosage: CYCLE 3
     Route: 041
     Dates: start: 20170926, end: 20170928
  12. ETOPOSIDE. [Suspect]
     Active Substance: ETOPOSIDE
     Dosage: CYCLE 4
     Route: 041
     Dates: start: 2017, end: 2017
  13. METAMIZOL [Concomitant]
     Active Substance: METAMIZOLE SODIUM
  14. ETOPOSIDE. [Suspect]
     Active Substance: ETOPOSIDE
     Dosage: CYCLE 2
     Route: 041
     Dates: start: 20170829, end: 20170831
  15. ETOPOSIDE. [Suspect]
     Active Substance: ETOPOSIDE
     Dosage: CYCLE 3
     Route: 041
     Dates: start: 20170926, end: 20170928
  16. PARACETAMOL [Concomitant]
     Active Substance: ACETAMINOPHEN
  17. IFOSFAMIDE. [Suspect]
     Active Substance: IFOSFAMIDE
     Dosage: CYCLE 2
     Route: 041
     Dates: start: 20170829, end: 20170831
  18. IFOSFAMIDE. [Suspect]
     Active Substance: IFOSFAMIDE
     Dosage: CYCLE 5
     Route: 041
     Dates: start: 20171121, end: 20171123
  19. LENVATINIB [Suspect]
     Active Substance: LENVATINIB
     Route: 048
     Dates: start: 20170807, end: 20170828

REACTIONS (6)
  - Gastritis [Recovered/Resolved]
  - Neutropenia [Recovered/Resolved]
  - Thrombocytopenia [Recovering/Resolving]
  - Leukopenia [Recovered/Resolved]
  - Cholecystitis [Recovered/Resolved]
  - Urinary tract infection [Recovered/Resolved]

NARRATIVE: CASE EVENT DATE: 20170801
